FAERS Safety Report 13438291 (Version 1)
Quarter: 2017Q2

REPORT INFORMATION
  Report Type: Spontaneous
  Country: SE (occurrence: SE)
  Receive Date: 20170413
  Receipt Date: 20170413
  Transmission Date: 20170830
  Serious: Yes (Hospitalization)
  Sender: FDA-Public Use
  Company Number: SE-TEVA-755928ACC

PATIENT
  Age: 38 Year
  Sex: Female

DRUGS (3)
  1. NOZINAN 25 MG TGABLET [Suspect]
     Active Substance: LEVOMEPROMAZINE
     Dosage: 57-80 TABLET
     Dates: start: 20161121, end: 20161121
  2. ALVEDON 665 MG MODIFIED RELEASE TABLET [Suspect]
     Active Substance: ACETAMINOPHEN
     Dosage: 30 TABLET
     Route: 048
     Dates: start: 20161121, end: 20161121
  3. OXASCAND 10 MG TABLETT [Suspect]
     Active Substance: OXAZEPAM
     Dosage: 20-30 TABLET
     Dates: start: 20161121, end: 20161121

REACTIONS (5)
  - Analgesic drug level increased [Recovered/Resolved]
  - Suicide attempt [Recovered/Resolved]
  - Overdose [Recovered/Resolved]
  - Depressed level of consciousness [Recovered/Resolved]
  - Toxicity to various agents [Recovered/Resolved]

NARRATIVE: CASE EVENT DATE: 20161121
